FAERS Safety Report 8789947 (Version 1)
Quarter: 2012Q4

REPORT INFORMATION
  Report Type: 
  Country: US (occurrence: US)
  Receive Date: 20120917
  Receipt Date: 20120917
  Transmission Date: 20130627
  Serious: No
  Sender: FDA-Public Use
  Company Number: US-009507513-1209USA001906

PATIENT

DRUGS (2)
  1. IMPLANON [Suspect]
     Indication: CONTRACEPTION
     Dosage: 1 rod up to 3 years
     Route: 059
     Dates: start: 201203
  2. TYLENOL [Concomitant]
     Indication: HEADACHE
     Dosage: when needed

REACTIONS (7)
  - Pollakiuria [Unknown]
  - Unintended pregnancy [Unknown]
  - Fatigue [Unknown]
  - Nausea [Unknown]
  - Medical device complication [Unknown]
  - Implant site pain [Unknown]
  - Hypoaesthesia [Unknown]
